FAERS Safety Report 5494435-6 (Version None)
Quarter: 2007Q4

REPORT INFORMATION
  Report Type: 
  Country: None (occurrence: None)
  Receive Date: 20071022
  Receipt Date: 20071008
  Transmission Date: 20080405
  Serious: Yes (Other)
  Sender: FDA-Public Use
  Company Number: DSM-2007-00783

PATIENT
  Age: 66 Year
  Sex: Male

DRUGS (2)
  1. BELSAR (OLMESARTAN MEDOXOMIL) (OLMESARTAN MEDOXOMIL) [Suspect]
     Indication: HYPERTENSION
     Dosage: ORAL
     Route: 048
  2. SOTALOL (SOTALOL HYDROCHLORIDE) (SOTALOL HYDROCHLORIDE) [Concomitant]

REACTIONS (16)
  - ANOREXIA [None]
  - BLOOD CREATININE INCREASED [None]
  - DIZZINESS [None]
  - DRUG HYPERSENSITIVITY [None]
  - EOSINOPHILIA [None]
  - FATIGUE [None]
  - HYPOTENSION [None]
  - INFLAMMATION [None]
  - MALAISE [None]
  - MUSCLE FATIGUE [None]
  - NAUSEA [None]
  - PROTEINURIA [None]
  - PYREXIA [None]
  - RASH MACULAR [None]
  - VASCULITIS [None]
  - YELLOW SKIN [None]
